FAERS Safety Report 10710316 (Version 1)
Quarter: 2015Q1

REPORT INFORMATION
  Report Type: Spontaneous
  Country: US (occurrence: None)
  Receive Date: 20150112
  Receipt Date: 20150112
  Transmission Date: 20150721
  Serious: Yes (Other)
  Sender: FDA-Public Use
  Company Number: BTG00172

PATIENT
  Age: 13 Year
  Sex: Female

DRUGS (2)
  1. VORAXAZE [Suspect]
     Active Substance: GLUCARPIDASE
     Indication: TOXICITY TO VARIOUS AGENTS
     Route: 042
  2. METHOTREXATE (METHOTREXATE SODIUM) [Suspect]
     Active Substance: METHOTREXATE SODIUM
     Indication: OSTEOSARCOMA

REACTIONS (7)
  - Rebound effect [None]
  - Continuous haemodiafiltration [None]
  - Encephalopathy [None]
  - Drug effect incomplete [None]
  - Toxicity to various agents [None]
  - Renal failure [None]
  - Hepatic failure [None]
